FAERS Safety Report 24703211 (Version 3)
Quarter: 2025Q4

REPORT INFORMATION
  Report Type: Spontaneous
  Country: EU (occurrence: EU)
  Receive Date: 20241205
  Receipt Date: 20251031
  Transmission Date: 20260118
  Serious: Yes (Death, Hospitalization, Other)
  Sender: GILEAD
  Company Number: EU-GILEAD-2024-0696163

PATIENT
  Age: 58 Year
  Sex: Female

DRUGS (1)
  1. TECARTUS [Suspect]
     Active Substance: BREXUCABTAGENE AUTOLEUCEL
     Indication: Mantle cell lymphoma
     Dosage: UNK
     Route: 042
     Dates: start: 20241114, end: 20241114

REACTIONS (5)
  - Candida infection [Fatal]
  - Mantle cell lymphoma [Fatal]
  - Pleural effusion [Fatal]
  - Cytokine release syndrome [Fatal]
  - Immune effector cell-associated neurotoxicity syndrome [Fatal]
